FAERS Safety Report 6856874-8 (Version None)
Quarter: 2010Q3

REPORT INFORMATION
  Report Type: 
  Country: None (occurrence: None)
  Receive Date: 20100719
  Receipt Date: 20091113
  Transmission Date: 20110219
  Serious: Yes (Other)
  Sender: FDA-Public Use
  Company Number: US-BRISTOL-MYERS SQUIBB COMPANY-14253827

PATIENT
  Age: 69 Year
  Sex: Female

DRUGS (17)
  1. ESTRACE [Suspect]
     Indication: HORMONE THERAPY
     Dosage: INITIALY TAKEN FROM 1998-1999 AND AGAIN TAKEN FROM JUN02
     Dates: start: 19980101
  2. ESTRACE [Suspect]
     Indication: MENOPAUSE
     Dosage: INITIALY TAKEN FROM 1998-1999 AND AGAIN TAKEN FROM JUN02
     Dates: start: 19980101
  3. ESTRACE [Suspect]
     Indication: HOT FLUSH
     Dosage: INITIALY TAKEN FROM 1998-1999 AND AGAIN TAKEN FROM JUN02
     Dates: start: 19980101
  4. ESTRACE [Suspect]
     Indication: NIGHT SWEATS
     Dosage: INITIALY TAKEN FROM 1998-1999 AND AGAIN TAKEN FROM JUN02
     Dates: start: 19980101
  5. CLIMARA [Suspect]
     Indication: HORMONE THERAPY
     Dosage: INITIALY TAKEN FROM 1998-99 AND AGAIN FROM JUL02.
     Route: 061
     Dates: start: 19980101
  6. CLIMARA [Suspect]
     Indication: NIGHT SWEATS
     Dosage: INITIALY TAKEN FROM 1998-99 AND AGAIN FROM JUL02.
     Route: 061
     Dates: start: 19980101
  7. CLIMARA [Suspect]
     Indication: HOT FLUSH
     Dosage: INITIALY TAKEN FROM 1998-99 AND AGAIN FROM JUL02.
     Route: 061
     Dates: start: 19980101
  8. CLIMARA [Suspect]
     Indication: MENOPAUSE
     Dosage: INITIALY TAKEN FROM 1998-99 AND AGAIN FROM JUL02.
     Route: 061
     Dates: start: 19980101
  9. PREMARIN [Suspect]
     Indication: MENOPAUSE
     Dates: start: 19820101, end: 20020101
  10. PREMARIN [Suspect]
     Indication: HOT FLUSH
     Dates: start: 19820101, end: 20020101
  11. PREMARIN [Suspect]
     Indication: NIGHT SWEATS
     Dates: start: 19820101, end: 20020101
  12. PREMPRO [Suspect]
     Indication: MENOPAUSE
     Dosage: 0.625/2.5 MG
     Dates: start: 19990101, end: 20020101
  13. PREMPRO [Suspect]
     Indication: HOT FLUSH
     Dosage: 0.625/2.5 MG
     Dates: start: 19990101, end: 20020101
  14. PREMPRO [Suspect]
     Indication: NIGHT SWEATS
     Dosage: 0.625/2.5 MG
     Dates: start: 19990101, end: 20020101
  15. PROGESTERONE [Suspect]
  16. CONTRACEPTIVE [Concomitant]
     Route: 048
  17. FOSAMAX [Concomitant]
     Indication: OSTEOPOROSIS

REACTIONS (1)
  - BREAST CANCER [None]
